FAERS Safety Report 7249947-1 (Version None)
Quarter: 2011Q1

REPORT INFORMATION
  Report Type: 
  Country: None (occurrence: None)
  Receive Date: 20110128
  Receipt Date: 20100914
  Transmission Date: 20110831
  Serious: No
  Sender: FDA-Public Use
  Company Number: A0886546A

PATIENT
  Age: 63 Year
  Sex: Male

DRUGS (2)
  1. BUPROPION HYDROCHLORIDE [Suspect]
     Dosage: 300MG PER DAY
     Route: 065
     Dates: start: 20100801
  2. UNSPECIFIED MEDICATION [Concomitant]
     Route: 065

REACTIONS (6)
  - ABDOMINAL DISCOMFORT [None]
  - PARAESTHESIA [None]
  - NERVOUSNESS [None]
  - FEELING JITTERY [None]
  - HYPOAESTHESIA [None]
  - HEADACHE [None]
